FAERS Safety Report 8276323-5 (Version None)
Quarter: 2012Q2

REPORT INFORMATION
  Report Type: 
  Country: None (occurrence: None)
  Receive Date: 20120412
  Receipt Date: 20120404
  Transmission Date: 20120825
  Serious: Yes (Other)
  Sender: FDA-Public Use
  Company Number: PHHY2012AT029332

PATIENT
  Age: 63 Year
  Sex: Female
  Weight: 60 kg

DRUGS (3)
  1. ZOLEDRONOC ACID [Suspect]
     Route: 042
     Dates: start: 20120221
  2. OLEOVIT D3 [Concomitant]
     Dosage: 30 DROPS PER WEEK
  3. CAL-D-VITA [Concomitant]
     Dosage: 2 DF, QD

REACTIONS (6)
  - C-REACTIVE PROTEIN INCREASED [None]
  - LEUKOCYTOSIS [None]
  - MYALGIA [None]
  - BONE PAIN [None]
  - TACHYCARDIA [None]
  - RED BLOOD CELL SEDIMENTATION RATE INCREASED [None]
